FAERS Safety Report 20620167 (Version 4)
Quarter: 2024Q3

REPORT INFORMATION
  Report Type: Report from Study
  Country: CA (occurrence: CA)
  Receive Date: 20220322
  Receipt Date: 20240711
  Transmission Date: 20241016
  Serious: Yes (Other)
  Sender: BIOCON
  Company Number: CA-MYLANLABS-2022M1011765

PATIENT

DRUGS (4)
  1. HULIO [Suspect]
     Active Substance: ADALIMUMAB-FKJP
     Indication: Rheumatoid arthritis
     Dosage: 40 MILLIGRAM, Q2W
     Route: 065
  2. HULIO [Suspect]
     Active Substance: ADALIMUMAB-FKJP
     Dosage: UNK, BIWEEKLY
     Route: 058
  3. HULIO [Suspect]
     Active Substance: ADALIMUMAB-FKJP
     Dosage: 40 MILLIGRAM, QW
     Route: 058
  4. HULIO [Suspect]
     Active Substance: ADALIMUMAB-FKJP
     Dosage: 40 MG, QW
     Route: 058
     Dates: start: 20211109, end: 20240702

REACTIONS (5)
  - Seizure [Unknown]
  - Fall [Unknown]
  - Rib fracture [Unknown]
  - Fatigue [Unknown]
  - Off label use [Unknown]

NARRATIVE: CASE EVENT DATE: 20220224
